FAERS Safety Report 7431156-4 (Version None)
Quarter: 2011Q2

REPORT INFORMATION
  Report Type: 
  Country: None (occurrence: None)
  Receive Date: 20110421
  Receipt Date: 20110411
  Transmission Date: 20111010
  Serious: Yes (Life-Threatening, Hospitalization)
  Sender: FDA-Public Use
  Company Number: FR-WATSON-2011-05129

PATIENT
  Sex: Male
  Weight: 73 kg

DRUGS (5)
  1. BISOPROLOL FUMARATE [Concomitant]
     Indication: HYPERTENSION
     Dosage: 10 MG, DAILY
     Route: 065
  2. PANTOPRAZOLE [Concomitant]
     Indication: GASTROOESOPHAGEAL REFLUX DISEASE
     Dosage: 20 (UNIT UNSPECIFIED)
     Route: 065
  3. COVERSYL                           /00790702/ [Concomitant]
     Indication: HYPERTENSION
     Dosage: 2.5 MG, DAILY
     Route: 065
  4. RAPAFLO [Suspect]
     Indication: BENIGN PROSTATIC HYPERPLASIA
     Dosage: 8 MG, DAILY
     Route: 048
     Dates: start: 20110126, end: 20110126
  5. PRAVASTATIN SODIUM (PRAVASTATINE) [Concomitant]
     Indication: HYPERCHOLESTEROLAEMIA
     Dosage: 20 MG, DAILY
     Route: 065

REACTIONS (10)
  - TRAUMATIC SHOCK [None]
  - OPEN WOUND [None]
  - BREATH SOUNDS ABNORMAL [None]
  - VITAMIN B12 DEFICIENCY [None]
  - VENTRICULAR EXTRASYSTOLES [None]
  - FALL [None]
  - ORTHOSTATIC HYPOTENSION [None]
  - SYNCOPE [None]
  - MACROCYTOSIS [None]
  - SUPRAVENTRICULAR EXTRASYSTOLES [None]
